FAERS Safety Report 7450120-2 (Version None)
Quarter: 2011Q2

REPORT INFORMATION
  Report Type: 
  Country: None (occurrence: None)
  Receive Date: 20110502
  Receipt Date: 20110415
  Transmission Date: 20111010
  Serious: No
  Sender: FDA-Public Use
  Company Number: US-B.I. PHARMACEUTICALS,INC./RIDGEFIELD-2011-BP-10938BP

PATIENT
  Sex: Female

DRUGS (1)
  1. FLOMAX [Suspect]

REACTIONS (4)
  - HEADACHE [None]
  - ABNORMAL FAECES [None]
  - ABDOMINAL DISCOMFORT [None]
  - BACK PAIN [None]
